FAERS Safety Report 14276526 (Version 1)
Quarter: 2017Q4

REPORT INFORMATION
  Report Type: Spontaneous
  Country: US (occurrence: US)
  Receive Date: 20171211
  Receipt Date: 20171211
  Transmission Date: 20180321
  Serious: Yes (Other)
  Sender: FDA-Public Use
  Company Number: US-OTSUKA-DJ201306585

PATIENT
  Sex: Female

DRUGS (10)
  1. ABILIFY [Suspect]
     Active Substance: ARIPIPRAZOLE
     Indication: DEPRESSION
     Dosage: 10 MG, UNK
     Route: 065
  2. MARIJUANA [Suspect]
     Active Substance: CANNABIS SATIVA SUBSP. INDICA TOP
     Indication: SUBSTANCE USE
     Dosage: UNK
     Route: 065
  3. ALPRAZOLAM. [Suspect]
     Active Substance: ALPRAZOLAM
     Indication: ANXIETY
     Dosage: 1 MG, UNK
     Route: 065
  4. BUPRENORPHINE HYDROCHLORIDE. [Suspect]
     Active Substance: BUPRENORPHINE HYDROCHLORIDE
     Indication: DRUG DEPENDENCE
     Dosage: 8 MG, TID
     Route: 060
  5. LEPETAN INJECTION 0.2MG [Suspect]
     Active Substance: BUPRENORPHINE HYDROCHLORIDE
     Indication: DRUG DEPENDENCE
     Dosage: 8 MG, TID
     Route: 060
  6. COCAINE [Suspect]
     Active Substance: COCAINE
     Indication: SUBSTANCE USE
     Dosage: UNK
     Route: 065
  7. XANAX [Suspect]
     Active Substance: ALPRAZOLAM
     Indication: ANXIETY
     Dosage: 1 MG, UNK
     Route: 065
  8. HEROIN [Suspect]
     Active Substance: DIAMORPHINE
     Indication: SUBSTANCE USE
     Dosage: UNK
     Route: 065
  9. NICOTINE. [Suspect]
     Active Substance: NICOTINE
     Indication: NICOTINE DEPENDENCE
     Dosage: UNK
     Route: 065
     Dates: end: 20130618
  10. AMITRIPTYLINE [Suspect]
     Active Substance: AMITRIPTYLINE
     Indication: INSOMNIA
     Dosage: UNK UNK, QD
     Route: 065

REACTIONS (4)
  - Drug dependence [Unknown]
  - Maternal exposure during pregnancy [Recovered/Resolved]
  - Substance abuse [Unknown]
  - Live birth [Unknown]

NARRATIVE: CASE EVENT DATE: 20130618
